FAERS Safety Report 4642723-5 (Version None)
Quarter: 2005Q2

REPORT INFORMATION
  Report Type: 
  Country: None (occurrence: None)
  Receive Date: 20050420
  Receipt Date: 20050209
  Transmission Date: 20051028
  Serious: Yes (Hospitalization, Other)
  Sender: FDA-Public Use
  Company Number: 2005028494

PATIENT
  Sex: Male

DRUGS (1)
  1. CELEBREX [Suspect]
     Indication: MONARTHRITIS
     Dosage: 200 MG AS NECESSARY, ORAL
     Route: 048
     Dates: start: 20000101

REACTIONS (11)
  - ARTERIAL RUPTURE [None]
  - ATRIAL FIBRILLATION [None]
  - CORONARY ARTERY DISEASE [None]
  - CORONARY ARTERY PERFORATION [None]
  - DRUG INEFFECTIVE [None]
  - INGUINAL HERNIA [None]
  - JOINT SWELLING [None]
  - MYOCARDIAL INFARCTION [None]
  - PERITONEAL DIALYSIS [None]
  - PROSTATIC OPERATION [None]
  - RENAL FAILURE CHRONIC [None]
